FAERS Safety Report 18479501 (Version 4)
Quarter: 2023Q1

REPORT INFORMATION
  Report Type: Spontaneous
  Country: US (occurrence: US)
  Receive Date: 20201109
  Receipt Date: 20230206
  Transmission Date: 20230418
  Serious: Yes (Other)
  Sender: FDA-Public Use
  Company Number: US-GLAXOSMITHKLINE-US2020GSK217698

PATIENT
  Age: 45 Year
  Sex: Male

DRUGS (10)
  1. GRISEOFULVIN [Suspect]
     Active Substance: GRISEOFULVIN
     Indication: Dermatophytosis
     Dosage: UNK
     Route: 048
  2. TERBINAFINE [Suspect]
     Active Substance: TERBINAFINE
     Indication: Dermatophytosis
     Dosage: UNK
     Route: 048
  3. TERBINAFINE [Suspect]
     Active Substance: TERBINAFINE
     Indication: Body tinea
     Dosage: 250 MG
  4. NAFTIFINE [Suspect]
     Active Substance: NAFTIFINE
     Indication: Dermatophytosis
     Dosage: UNK
     Route: 061
  5. APIXABAN [Concomitant]
     Active Substance: APIXABAN
     Indication: Coagulopathy
     Dosage: UNK
  6. CICLOPIROX [Concomitant]
     Active Substance: CICLOPIROX
     Indication: Body tinea
     Dosage: UNK
     Route: 061
  7. CICLOPIROX [Concomitant]
     Active Substance: CICLOPIROX
     Indication: Onychomycosis
  8. ITRACONAZOLE [Concomitant]
     Active Substance: ITRACONAZOLE
     Indication: Dermatophytosis
     Dosage: 200 MG, BID
     Route: 048
  9. ITRACONAZOLE [Concomitant]
     Active Substance: ITRACONAZOLE
     Dosage: 200 MG PRN
     Route: 048
  10. ITRACONAZOLE [Concomitant]
     Active Substance: ITRACONAZOLE
     Dosage: 200 MG, QD
     Route: 048

REACTIONS (3)
  - Pathogen resistance [Unknown]
  - Drug resistance [Unknown]
  - Drug ineffective [Unknown]
